FAERS Safety Report 8940394 (Version 1)
Quarter: 2012Q4

REPORT INFORMATION
  Report Type: 
  Country: US (occurrence: US)
  Receive Date: 20121130
  Receipt Date: 20121130
  Transmission Date: 20130627
  Serious: Yes (Hospitalization)
  Sender: FDA-Public Use
  Company Number: US-ABBOTT-12P-163-1011932-00

PATIENT
  Age: 30 Year
  Sex: Female
  Weight: 56.75 kg

DRUGS (2)
  1. CREON [Suspect]
     Indication: WEIGHT CONTROL
     Dosage: 24,000 units daily
     Route: 048
     Dates: start: 201210
  2. A LOT OF UNREPORTED MEDICATIONS [Concomitant]
     Indication: PRODUCT USED FOR UNKNOWN INDICATION

REACTIONS (2)
  - Pyrexia [Unknown]
  - Pseudomonas infection [Unknown]
